FAERS Safety Report 11617110 (Version 6)
Quarter: 2017Q3

REPORT INFORMATION
  Report Type: Report from Study
  Country: US (occurrence: US)
  Receive Date: 20151009
  Receipt Date: 20170907
  Transmission Date: 20171127
  Serious: Yes (Other)
  Sender: FDA-Public Use
  Company Number: US-EISAI MEDICAL RESEARCH-EC-2015-010879

PATIENT
  Age: 73 Year
  Sex: Male
  Weight: 100.7 kg

DRUGS (35)
  1. FISH OIL [Concomitant]
     Active Substance: FISH OIL
     Route: 048
     Dates: start: 20091221
  2. SERTRALINE [Concomitant]
     Active Substance: SERTRALINE HYDROCHLORIDE
     Route: 048
     Dates: start: 20150812, end: 20150819
  3. MELOXICAM. [Concomitant]
     Active Substance: MELOXICAM
     Route: 048
     Dates: start: 20140519
  4. LOSARTAN. [Concomitant]
     Active Substance: LOSARTAN
     Route: 048
     Dates: start: 20031020
  5. CHOLECALCIFEROL [Concomitant]
     Active Substance: CHOLECALCIFEROL
     Route: 048
     Dates: start: 20101015
  6. FLORAJEN [Concomitant]
     Route: 048
     Dates: start: 20070823
  7. VOLTAREN [Concomitant]
     Active Substance: DICLOFENAC SODIUM
     Route: 061
     Dates: start: 201405
  8. HYDROCHLOROTHIAZIDE. [Concomitant]
     Active Substance: HYDROCHLOROTHIAZIDE
     Route: 048
     Dates: start: 20130617
  9. ACETAMINOPHEN. [Concomitant]
     Active Substance: ACETAMINOPHEN
     Route: 048
     Dates: start: 20100621
  10. POTASSIUM CHLORIDE. [Concomitant]
     Active Substance: POTASSIUM CHLORIDE
     Route: 048
     Dates: start: 20031020
  11. AMLODIPINE [Concomitant]
     Active Substance: AMLODIPINE BESYLATE
     Route: 048
     Dates: start: 20071002
  12. CITALOPRAM [Concomitant]
     Active Substance: CITALOPRAM HYDROBROMIDE
     Route: 048
     Dates: start: 20110425, end: 20150819
  13. NYSTATIN. [Concomitant]
     Active Substance: NYSTATIN
     Route: 061
     Dates: start: 20130617
  14. NITROGLYCERIN. [Concomitant]
     Active Substance: NITROGLYCERIN
     Route: 048
     Dates: start: 20071002
  15. SPIRONOLACTONE. [Concomitant]
     Active Substance: SPIRONOLACTONE
     Route: 048
     Dates: start: 20091026
  16. BENAZEPRIL [Concomitant]
     Active Substance: BENAZEPRIL HYDROCHLORIDE
     Route: 048
     Dates: start: 20070826
  17. ALBUTEROL. [Concomitant]
     Active Substance: ALBUTEROL
     Route: 048
     Dates: start: 20090421
  18. ASPIRIN. [Concomitant]
     Active Substance: ASPIRIN
     Route: 048
     Dates: start: 20070826
  19. PRESERVISION EYE VITAMIN [Concomitant]
     Route: 048
     Dates: start: 20120507
  20. DOXAZOSIN [Concomitant]
     Active Substance: DOXAZOSIN\DOXAZOSIN MESYLATE
     Route: 048
     Dates: start: 20081107
  21. SERTRALINE [Concomitant]
     Active Substance: SERTRALINE HYDROCHLORIDE
     Route: 048
     Dates: start: 20150820
  22. LORCASERIN [Suspect]
     Active Substance: LORCASERIN HYDROCHLORIDE
     Indication: WEIGHT CONTROL
     Route: 048
     Dates: start: 20141126, end: 20150824
  23. FUROSEMIDE. [Concomitant]
     Active Substance: FUROSEMIDE
     Route: 048
     Dates: start: 20070823
  24. ISOSORBIDE MONONITRATE. [Concomitant]
     Active Substance: ISOSORBIDE MONONITRATE
     Route: 048
     Dates: start: 20141014
  25. SERTRALINE [Concomitant]
     Active Substance: SERTRALINE HYDROCHLORIDE
     Dates: start: 2009
  26. LEVOTHYROXINE. [Concomitant]
     Active Substance: LEVOTHYROXINE
     Route: 048
     Dates: start: 20110927
  27. CODEINE- GUAIFENESIN [Concomitant]
     Route: 048
     Dates: start: 20130104
  28. BEEF GELATIN [Concomitant]
     Route: 048
     Dates: start: 20141021
  29. LORCASERIN [Suspect]
     Active Substance: LORCASERIN HYDROCHLORIDE
     Route: 048
     Dates: start: 20150912
  30. RANITIDINE. [Concomitant]
     Active Substance: RANITIDINE
     Route: 048
     Dates: start: 20140519
  31. VOLTAREN [Concomitant]
     Active Substance: DICLOFENAC SODIUM
     Route: 048
     Dates: start: 201405
  32. VITAMIN D3 [Concomitant]
     Active Substance: CHOLECALCIFEROL
  33. DICLOFENAC SODIUM. [Concomitant]
     Active Substance: DICLOFENAC SODIUM
     Route: 048
     Dates: start: 20130702
  34. GLUCOSAMINE - CHONDROITIN [Concomitant]
     Route: 048
     Dates: start: 20121016
  35. CINNAMON. [Concomitant]
     Active Substance: CINNAMON
     Route: 048
     Dates: start: 20100827

REACTIONS (2)
  - Suicidal ideation [Recovered/Resolved]
  - Anger [Recovered/Resolved]

NARRATIVE: CASE EVENT DATE: 201502
